FAERS Safety Report 7925744 (Version 3)
Quarter: 2012Q4

REPORT INFORMATION
  Report Type: 
  Country: US (occurrence: US)
  Receive Date: 20110502
  Receipt Date: 20121025
  Transmission Date: 20130627
  Serious: No
  Sender: FDA-Public Use
  Company Number: US-ASTRAZENECA-2010SE45807

PATIENT
  Age: 51 Year
  Sex: Female

DRUGS (4)
  1. NEXIUM [Suspect]
     Route: 048
  2. PRILOSEC DELAYED-RELEASE CAPSULES [Suspect]
     Route: 048
  3. ADVAIR [Concomitant]
  4. ALLEGRA [Concomitant]

REACTIONS (5)
  - Chest discomfort [Unknown]
  - Asthma [Unknown]
  - Gastrooesophageal reflux disease [Unknown]
  - Dyspepsia [Unknown]
  - Intentional drug misuse [Unknown]
